FAERS Safety Report 12656190 (Version 1)
Quarter: 2016Q3

REPORT INFORMATION
  Report Type: Spontaneous
  Country: US (occurrence: US)
  Receive Date: 20160816
  Receipt Date: 20160816
  Transmission Date: 20161109
  Serious: No
  Sender: FDA-Public Use
  Company Number: US-GALDERMA-US15005779

PATIENT
  Age: 80 Year
  Sex: Male

DRUGS (4)
  1. FINACEA [Concomitant]
     Active Substance: AZELAIC ACID
     Indication: ROSACEA
     Dosage: 15%
     Route: 061
  2. CERAVE HYDRATING CLEANSER [Concomitant]
     Active Substance: SALICYLIC ACID
     Indication: THERAPEUTIC SKIN CARE TOPICAL
     Route: 061
  3. UNKNOWN SUNSCREEN [Concomitant]
     Indication: PROPHYLAXIS AGAINST SOLAR RADIATION
     Route: 061
  4. METROGEL [Suspect]
     Active Substance: METRONIDAZOLE
     Indication: ROSACEA
     Route: 061
     Dates: start: 2010

REACTIONS (1)
  - Expired product administered [Not Recovered/Not Resolved]
